FAERS Safety Report 7313785-1 (Version None)
Quarter: 2011Q1

REPORT INFORMATION
  Report Type: 
  Country: None (occurrence: None)
  Receive Date: 20110225
  Receipt Date: 20110221
  Transmission Date: 20110831
  Serious: Yes (Other)
  Sender: FDA-Public Use
  Company Number: BR-PFIZER INC-2011037366

PATIENT
  Age: 63 Year
  Sex: Female
  Weight: 55 kg

DRUGS (10)
  1. PURAN T4 [Concomitant]
     Indication: HYPOTHYROIDISM
     Dosage: UNK
  2. BETASERC [Concomitant]
     Indication: LABYRINTHITIS
     Dosage: UNK
     Dates: start: 20080101
  3. PANTOPRAZOL [Concomitant]
     Indication: GASTRIC DISORDER
     Dosage: UNK
  4. PANTOPRAZOLE [Concomitant]
  5. CHAMPIX [Suspect]
     Dosage: 1 MG, 2X/DAY
     Route: 048
     Dates: start: 20110201
  6. CHAMPIX [Suspect]
     Indication: SMOKING CESSATION THERAPY
     Dosage: UNK
     Route: 048
     Dates: start: 20110209, end: 20110201
  7. SIMVASTATIN [Concomitant]
     Indication: BLOOD CHOLESTEROL INCREASED
     Dosage: UNK
  8. EXODUS [Concomitant]
     Indication: ANXIETY
     Dosage: UNK
     Dates: start: 20090101
  9. ALPRAZOLAM [Concomitant]
     Indication: ANXIETY
     Dosage: UNK
  10. ALPRAZOLAM [Concomitant]
     Indication: DEPRESSION

REACTIONS (13)
  - INFLUENZA [None]
  - FOAMING AT MOUTH [None]
  - NERVOUSNESS [None]
  - FLATULENCE [None]
  - DIZZINESS [None]
  - PHARYNGITIS [None]
  - RESTLESSNESS [None]
  - NAUSEA [None]
  - MALAISE [None]
  - DENTAL IMPLANTATION [None]
  - HEADACHE [None]
  - VOMITING [None]
  - RETCHING [None]
